FAERS Safety Report 9373992 (Version 1)
Quarter: 2013Q2

REPORT INFORMATION
  Report Type: Spontaneous
  Country: US (occurrence: None)
  Receive Date: 20130627
  Receipt Date: 20130627
  Transmission Date: 20140414
  Serious: No
  Sender: FDA-Public Use
  Company Number: None

PATIENT
  Age: 52 Year
  Sex: Male

DRUGS (1)
  1. ZESTRIL [Suspect]
     Indication: HYPERTENSION
     Dosage: QAM
     Route: 048
     Dates: start: 20101229, end: 20110907

REACTIONS (2)
  - Blood pressure inadequately controlled [None]
  - Product substitution issue [None]
